FAERS Safety Report 7546055-7 (Version None)
Quarter: 2011Q2

REPORT INFORMATION
  Report Type: 
  Country: None (occurrence: None)
  Receive Date: 20110614
  Receipt Date: 20110602
  Transmission Date: 20111010
  Serious: Yes (Other)
  Sender: FDA-Public Use
  Company Number: PHHY2011US40785

PATIENT
  Sex: Female

DRUGS (5)
  1. TOPAMAX [Concomitant]
     Indication: HEADACHE
     Dosage: 50 MG, BID
  2. GILENYA [Suspect]
     Dosage: 10 MG, QD,OVERDOSE
     Route: 048
     Dates: start: 20110101
  3. BACLOFEN [Concomitant]
     Indication: MUSCLE SPASMS
     Dosage: 0.5 MG, UNK
  4. GILENYA [Suspect]
     Indication: MULTIPLE SCLEROSIS
     Dosage: 0.5 MG, DAILY
     Route: 048
     Dates: start: 20110101
  5. KLONOPIN [Concomitant]
     Indication: MUSCLE SPASMS
     Dosage: 0.5 MG, UNK

REACTIONS (2)
  - OVERDOSE [None]
  - URINARY TRACT INFECTION [None]
